FAERS Safety Report 25516435 (Version 3)
Quarter: 2025Q3

REPORT INFORMATION
  Report Type: Spontaneous
  Country: JP (occurrence: JP)
  Receive Date: 20250704
  Receipt Date: 20250804
  Transmission Date: 20251020
  Serious: Yes (Life-Threatening, Hospitalization, Other)
  Sender: ASTELLAS
  Company Number: JP-ASTELLAS-2025-AER-035903

PATIENT
  Age: 71 Year
  Sex: Male

DRUGS (7)
  1. PADCEV [Suspect]
     Active Substance: ENFORTUMAB VEDOTIN-EJFV
     Indication: Transitional cell carcinoma
     Route: 065
  2. PEMBROLIZUMAB [Suspect]
     Active Substance: PEMBROLIZUMAB
     Indication: Transitional cell carcinoma
     Route: 065
  3. PEMBROLIZUMAB [Suspect]
     Active Substance: PEMBROLIZUMAB
     Route: 065
  4. PEMBROLIZUMAB [Suspect]
     Active Substance: PEMBROLIZUMAB
     Route: 065
  5. bilastine oral [Concomitant]
     Indication: Pruritus
     Route: 048
  6. DEXAMETHASONE VALERATE [Concomitant]
     Active Substance: DEXAMETHASONE VALERATE
     Indication: Pruritus
     Route: 048
  7. urea-containing ointment [Concomitant]
     Indication: Pruritus
     Route: 048

REACTIONS (14)
  - Prerenal failure [Recovered/Resolved]
  - Movement disorder [Unknown]
  - Hypothyroidism [Unknown]
  - Dehydration [Unknown]
  - Decreased appetite [Unknown]
  - Malnutrition [Unknown]
  - Adrenal insufficiency [Unknown]
  - Adrenocorticotropic hormone deficiency [Unknown]
  - Pruritus [Recovered/Resolved]
  - Taste disorder [Not Recovered/Not Resolved]
  - Liver disorder [Unknown]
  - Skin disorder [Unknown]
  - Dry skin [Unknown]
  - Skin abrasion [Unknown]
